FAERS Safety Report 7381422-6 (Version None)
Quarter: 2011Q1

REPORT INFORMATION
  Report Type: 
  Country: None (occurrence: None)
  Receive Date: 20110321
  Receipt Date: 20110310
  Transmission Date: 20110831
  Serious: Yes (Life-Threatening, Hospitalization, Other)
  Sender: FDA-Public Use
  Company Number: 028022

PATIENT
  Age: 56 Year
  Sex: Male
  Weight: 70 kg

DRUGS (2)
  1. KEPPRA [Suspect]
     Indication: EPILEPSY
     Dosage: (250 MG BID ORAL), (500 MG BID ORAL)
     Route: 048
     Dates: start: 20090819, end: 20100112
  2. KEPPRA [Suspect]
     Indication: EPILEPSY
     Dosage: (250 MG BID ORAL), (500 MG BID ORAL)
     Route: 048
     Dates: start: 20100113, end: 20101119

REACTIONS (13)
  - CONVULSION [None]
  - PALLOR [None]
  - THROMBOCYTOPENIA [None]
  - COAGULOPATHY [None]
  - BRADYCARDIA [None]
  - BLOOD POTASSIUM INCREASED [None]
  - RENAL FAILURE ACUTE [None]
  - DISTURBANCE IN ATTENTION [None]
  - HYPOTENSION [None]
  - RASH [None]
  - LONG QT SYNDROME [None]
  - GENERAL PHYSICAL HEALTH DETERIORATION [None]
  - HYPOTHERMIA [None]
